FAERS Safety Report 23864719 (Version 2)
Quarter: 2024Q2

REPORT INFORMATION
  Report Type: Spontaneous
  Country: US (occurrence: US)
  Receive Date: 20240516
  Receipt Date: 20240529
  Transmission Date: 20240716
  Serious: No
  Sender: FDA-Public Use
  Company Number: US-ViiV Healthcare Limited-111268

PATIENT
  Age: 57 Year
  Sex: Female

DRUGS (2)
  1. RILPIVIRINE [Suspect]
     Active Substance: RILPIVIRINE
     Indication: Product used for unknown indication
     Dosage: UNK UNK, Q2M,600/900/3 ML
     Route: 030
     Dates: start: 202208, end: 20240312
  2. CABOTEGRAVIR [Suspect]
     Active Substance: CABOTEGRAVIR
     Indication: Product used for unknown indication
     Dosage: UNK UNK, Q2M,600/900/3 ML
     Route: 030
     Dates: start: 202208, end: 20240312

REACTIONS (1)
  - Haematoma [Recovering/Resolving]

NARRATIVE: CASE EVENT DATE: 20240312
